FAERS Safety Report 5583592-9 (Version None)
Quarter: 2008Q1

REPORT INFORMATION
  Report Type: 
  Country: None (occurrence: None)
  Receive Date: 20080107
  Receipt Date: 20071228
  Transmission Date: 20080703
  Serious: Yes (Other)
  Sender: FDA-Public Use
  Company Number: PL-MERCK-0712POL00006

PATIENT
  Age: 4 Year
  Sex: Female

DRUGS (4)
  1. SINGULAIR [Suspect]
     Indication: ASTHMA
     Route: 048
     Dates: start: 20071022, end: 20071023
  2. ZYRTEC [Concomitant]
     Indication: FOOD ALLERGY
     Route: 048
     Dates: start: 20071022
  3. RHINOCORT [Concomitant]
     Indication: RHINITIS
     Route: 065
     Dates: start: 20071022
  4. [THERAPY UNSPECIFIED] [Concomitant]
     Indication: ROUTINE HEALTH MAINTENANCE
     Route: 048
     Dates: start: 20071022

REACTIONS (6)
  - CHILLS [None]
  - DELIRIUM [None]
  - PYREXIA [None]
  - RASH [None]
  - TREMOR [None]
  - WHEEZING [None]
